FAERS Safety Report 4635489-6 (Version None)
Quarter: 2005Q2

REPORT INFORMATION
  Report Type: 
  Country: None (occurrence: None)
  Receive Date: 20050413
  Receipt Date: 20050406
  Transmission Date: 20051028
  Serious: Yes (Life-Threatening)
  Sender: FDA-Public Use
  Company Number: 2005055929

PATIENT
  Age: 63 Year
  Sex: Male

DRUGS (2)
  1. LIPITOR [Suspect]
     Indication: HYPERCHOLESTEROLAEMIA
     Dosage: (40 MG), ORAL
     Route: 048
     Dates: start: 20020101, end: 20040101
  2. ACE INHIBITOR NOS (ACE INHIBITOR NOS) [Concomitant]

REACTIONS (2)
  - HEPATIC CANCER METASTATIC [None]
  - METASTASES TO LUNG [None]
